FAERS Safety Report 6861201-6 (Version None)
Quarter: 2010Q3

REPORT INFORMATION
  Report Type: 
  Country: None (occurrence: None)
  Receive Date: 20100720
  Receipt Date: 20100707
  Transmission Date: 20110219
  Serious: Yes (Other)
  Sender: FDA-Public Use
  Company Number: GR-ELI_LILLY_AND_COMPANY-GR201007001379

PATIENT
  Age: 76 Year
  Sex: Male

DRUGS (7)
  1. ZYPADHERA [Suspect]
     Indication: BIPOLAR I DISORDER
     Dosage: 300 MG, UNK
     Route: 030
     Dates: start: 20100501, end: 20100630
  2. ZYPADHERA [Suspect]
     Dosage: 405 MG, UNK
     Route: 030
     Dates: start: 20100701
  3. CLOPIXOL [Concomitant]
     Indication: BIPOLAR I DISORDER
     Dosage: UNK UNK, DAILY (1/D)
     Route: 048
  4. ALOPERIDIN [Concomitant]
     Indication: BIPOLAR I DISORDER
     Dosage: UNK UNK, DAILY (1/D)
     Route: 048
  5. ZYPREXA [Concomitant]
     Indication: BIPOLAR I DISORDER
     Dosage: UNK UNK, DAILY (1/D)
     Route: 048
  6. ATARAX [Concomitant]
     Indication: ANXIETY
     Route: 048
  7. NOZINAN [Concomitant]
     Indication: BIPOLAR I DISORDER
     Dosage: UNK, UNK
     Route: 048

REACTIONS (4)
  - AGGRESSION [None]
  - HYPERTENSION [None]
  - PYREXIA [None]
  - SOMNOLENCE [None]
